FAERS Safety Report 6477200-2 (Version None)
Quarter: 2009Q4

REPORT INFORMATION
  Report Type: 
  Country: None (occurrence: None)
  Receive Date: 20091207
  Receipt Date: 20091126
  Transmission Date: 20100525
  Serious: Yes (Other)
  Sender: FDA-Public Use
  Company Number: PHHY2009CA08986

PATIENT
  Sex: Female

DRUGS (1)
  1. ACLASTA [Suspect]
     Indication: OSTEOPOROSIS
     Dosage: UNK
     Dates: start: 20081015

REACTIONS (11)
  - BLADDER DISORDER [None]
  - BLOOD ELECTROLYTES ABNORMAL [None]
  - BONE PAIN [None]
  - EYE PAIN [None]
  - FATIGUE [None]
  - HYPOAESTHESIA [None]
  - MUSCLE TWITCHING [None]
  - MYALGIA [None]
  - PARAESTHESIA [None]
  - POLYPECTOMY [None]
  - URINARY RETENTION [None]
